FAERS Safety Report 17904543 (Version 7)
Quarter: 2020Q3

REPORT INFORMATION
  Report Type: Spontaneous
  Country: US (occurrence: US)
  Receive Date: 20200616
  Receipt Date: 20200810
  Transmission Date: 20201103
  Serious: Yes (Hospitalization, Other)
  Sender: FDA-Public Use
  Company Number: US-GILEAD-2020-0472299

PATIENT
  Age: 8 Year
  Sex: Female
  Weight: 40 kg

DRUGS (7)
  1. AMBRISENTAN [Suspect]
     Active Substance: AMBRISENTAN
     Indication: HEART DISEASE CONGENITAL
  2. AMBRISENTAN [Suspect]
     Active Substance: AMBRISENTAN
     Indication: PULMONARY HYPERTENSION
     Dosage: 5 MG, QD
     Route: 048
     Dates: start: 20200213
  3. ASPIRIN [ACETYLSALICYLIC ACID] [Concomitant]
     Active Substance: ASPIRIN
     Indication: STENT PLACEMENT
     Dosage: 81 MG, QD
     Route: 048
     Dates: start: 20190531
  4. OXYGEN. [Concomitant]
     Active Substance: OXYGEN
     Dosage: UNK
  5. LASIX [Concomitant]
     Active Substance: FUROSEMIDE
  6. SILDENAFIL. [Concomitant]
     Active Substance: SILDENAFIL
     Indication: PULMONARY HYPERTENSION
     Dosage: 20 MG, TID
     Route: 048
     Dates: start: 20191231
  7. FUROSEMIDE. [Concomitant]
     Active Substance: FUROSEMIDE
     Indication: PULMONARY HYPERTENSION
     Dosage: 20 MG, QD
     Route: 048
     Dates: start: 20190521

REACTIONS (6)
  - Heart disease congenital [Not Recovered/Not Resolved]
  - Dyspnoea [Unknown]
  - Decreased activity [Unknown]
  - Pulmonary oedema [Not Recovered/Not Resolved]
  - Off label use [Unknown]
  - Transplant evaluation [Unknown]
